FAERS Safety Report 9323574 (Version 1)
Quarter: 2013Q2

REPORT INFORMATION
  Report Type: Spontaneous
  Country: US (occurrence: US)
  Receive Date: 20130603
  Receipt Date: 20130603
  Transmission Date: 20140414
  Serious: Yes (Other)
  Sender: FDA-Public Use
  Company Number: US-AMGEN-USASP2013038534

PATIENT
  Age: 92 Year
  Sex: Female

DRUGS (5)
  1. PROLIA [Suspect]
     Indication: OSTEOPOROSIS POSTMENOPAUSAL
  2. COMBIGAN [Concomitant]
  3. AMLODIPINE [Concomitant]
  4. PREDNISOLONE [Concomitant]
  5. SPIRONOLACTONE [Concomitant]

REACTIONS (5)
  - Hypertension [Unknown]
  - Glaucoma [Unknown]
  - Spinal disorder [Unknown]
  - Back disorder [Unknown]
  - Drug ineffective [Unknown]
